FAERS Safety Report 8847984 (Version 1)
Quarter: 2012Q4

REPORT INFORMATION
  Report Type: 
  Country: US (occurrence: US)
  Receive Date: 20121018
  Receipt Date: 20121018
  Transmission Date: 20130627
  Serious: Yes (Death, Life-Threatening, Hospitalization, Other)
  Sender: FDA-Public Use
  Company Number: US-JNJFOC-20121008972

PATIENT
  Age: 6 None
  Sex: Male

DRUGS (2)
  1. STELARA [Suspect]
     Indication: PSORIASIS
     Route: 058
  2. CYCLOSPORINE [Concomitant]
     Route: 065

REACTIONS (4)
  - Pneumonia [Fatal]
  - Sepsis [Fatal]
  - Hepatic cirrhosis [Unknown]
  - Psoriasis [Unknown]
